FAERS Safety Report 11952522 (Version 1)
Quarter: 2016Q1

REPORT INFORMATION
  Report Type: Spontaneous
  Country: CN (occurrence: CN)
  Receive Date: 20160125
  Receipt Date: 20160125
  Transmission Date: 20160526
  Serious: Yes (Other)
  Sender: FDA-Public Use
  Company Number: CN-VALIDUS PHARMACEUTICALS LLC-CN-2016VAL000039

PATIENT
  Age: 48 Year
  Sex: Male

DRUGS (11)
  1. MORPHINE [Suspect]
     Active Substance: MORPHINE
     Dosage: 30 MG, EVERY 12 HOURS AS NEEDED
     Route: 048
  2. MORPHINE [Suspect]
     Active Substance: MORPHINE
     Dosage: 10 MG, EVERY 1-2 HOURS
     Route: 033
     Dates: start: 201501
  3. CARBAMAZEPINE. [Suspect]
     Active Substance: CARBAMAZEPINE
     Dosage: 0.2 G, BID
  4. MORPHINE [Suspect]
     Active Substance: MORPHINE
     Dosage: 40 MG, UNK
     Route: 048
     Dates: start: 201501
  5. FENTANYL. [Concomitant]
     Active Substance: FENTANYL
     Indication: NEURALGIA
     Dosage: 100 ?G/H
  6. FENTANYL. [Concomitant]
     Active Substance: FENTANYL
     Dosage: 150 ?G/H
     Dates: start: 201501
  7. DULOXETINE. [Concomitant]
     Active Substance: DULOXETINE
     Indication: NEURALGIA
     Dosage: 120 MG, QD (NIGHTLY)
  8. GABAPENTIN. [Concomitant]
     Active Substance: GABAPENTIN
     Indication: NEURALGIA
     Dosage: 0.3 G, TID
  9. MORPHINE [Suspect]
     Active Substance: MORPHINE
     Indication: NEURALGIA
     Dosage: 20 MG, EVERY 4 HOURS
     Route: 048
  10. FAMOTIDINE. [Suspect]
     Active Substance: FAMOTIDINE
     Indication: PRODUCT USED FOR UNKNOWN INDICATION
     Dosage: UNK
  11. CARBAMAZEPINE. [Suspect]
     Active Substance: CARBAMAZEPINE
     Indication: NEURALGIA
     Dosage: 0.2 G, BID
     Dates: end: 201501

REACTIONS (7)
  - Alanine aminotransferase increased [Recovering/Resolving]
  - Aspartate aminotransferase increased [Recovering/Resolving]
  - Potentiating drug interaction [Unknown]
  - Hyperaesthesia [Recovering/Resolving]
  - Hepatic function abnormal [Recovering/Resolving]
  - Blood alkaline phosphatase increased [Recovering/Resolving]
  - Gamma-glutamyltransferase increased [Recovering/Resolving]

NARRATIVE: CASE EVENT DATE: 20150110
